FAERS Safety Report 6931056-X (Version None)
Quarter: 2010Q3

REPORT INFORMATION
  Report Type: 
  Country: None (occurrence: None)
  Receive Date: 20100818
  Receipt Date: 20100803
  Transmission Date: 20110219
  Serious: Yes (Hospitalization, Other)
  Sender: FDA-Public Use
  Company Number: PHHY2010BR51416

PATIENT
  Sex: Male
  Weight: 86 kg

DRUGS (3)
  1. DIOVAN HCT [Suspect]
     Indication: HYPERTENSION
     Dosage: UNK
     Route: 048
     Dates: start: 20100501
  2. SELOZOK [Concomitant]
     Dosage: 1 DF, QD
     Route: 048
  3. SELOZOK [Concomitant]
     Dosage: 0.5 DF, QD
     Route: 048

REACTIONS (5)
  - AORTIC ANEURYSM REPAIR [None]
  - FATIGUE [None]
  - PRURITUS [None]
  - PULMONARY OEDEMA [None]
  - URTICARIA [None]
